FAERS Safety Report 23693615 (Version 1)
Quarter: 2024Q2

REPORT INFORMATION
  Report Type: Report from Study
  Country: US (occurrence: US)
  Receive Date: 20240401
  Receipt Date: 20240401
  Transmission Date: 20240716
  Serious: Yes (Other)
  Sender: FDA-Public Use
  Company Number: US-ABBVIE-5699889

PATIENT
  Sex: Male

DRUGS (1)
  1. SKYRIZI [Suspect]
     Active Substance: RISANKIZUMAB-RZAA
     Indication: Psoriasis
     Route: 058
     Dates: start: 20230927

REACTIONS (4)
  - Visual impairment [Recovered/Resolved]
  - Haemochromatosis [Recovered/Resolved]
  - Sleep deficit [Unknown]
  - Stress [Unknown]

NARRATIVE: CASE EVENT DATE: 20230101
